FAERS Safety Report 15835193 (Version 2)
Quarter: 2019Q1

REPORT INFORMATION
  Report Type: Spontaneous
  Country: LB (occurrence: LB)
  Receive Date: 20190116
  Receipt Date: 20190207
  Transmission Date: 20190417
  Serious: Yes (Life-Threatening, Hospitalization, Other)
  Sender: FDA-Public Use
  Company Number: LB-UCBSA-2019001297

PATIENT
  Age: 60 Year
  Sex: Female
  Weight: 100 kg

DRUGS (1)
  1. KEPPRA [Suspect]
     Active Substance: LEVETIRACETAM
     Indication: PARTIAL SEIZURES
     Dosage: 500 MG, 3X/DAY (TID)

REACTIONS (3)
  - Bradycardia [Recovered/Resolved]
  - Hypotension [Recovered/Resolved]
  - Off label use [Unknown]
